FAERS Safety Report 7875273-3 (Version None)
Quarter: 2011Q4

REPORT INFORMATION
  Report Type: 
  Country: None (occurrence: None)
  Receive Date: 20111031
  Receipt Date: 20111019
  Transmission Date: 20120403
  Serious: Yes (Other)
  Sender: FDA-Public Use
  Company Number: US-BAYER-2010-003832

PATIENT
  Age: 34 Year
  Sex: Female
  Weight: 76.644 kg

DRUGS (1)
  1. YASMIN [Suspect]
     Indication: MENSTRUATION IRREGULAR
     Dosage: UNK
     Dates: start: 20070107

REACTIONS (6)
  - HAEMATEMESIS [None]
  - GALLBLADDER DISORDER [None]
  - CHOLECYSTITIS ACUTE [None]
  - INJURY [None]
  - ABDOMINAL PAIN [None]
  - POST GASTRIC SURGERY SYNDROME [None]
